FAERS Safety Report 4445359-4 (Version None)
Quarter: 2004Q3

REPORT INFORMATION
  Report Type: 
  Country: None (occurrence: None)
  Receive Date: 20040907
  Receipt Date: 20040820
  Transmission Date: 20050211
  Serious: Yes (Other)
  Sender: FDA-Public Use
  Company Number: DSA_24870_2004

PATIENT
  Age: 82 Year
  Sex: Female

DRUGS (5)
  1. DILTIAZEM [Suspect]
     Indication: BLOOD PRESSURE INCREASED
     Dosage: 90 MG BID PO
     Route: 048
     Dates: start: 19990301, end: 20040501
  2. DIDRONEL PMO ^NORWICH EATON^ [Concomitant]
  3. COMBIVENT [Concomitant]
  4. DICLOFENAC [Concomitant]
  5. PHYLLOCONTIN [Concomitant]

REACTIONS (2)
  - CONFUSIONAL STATE [None]
  - HYPONATRAEMIA [None]
